FAERS Safety Report 21459641 (Version 1)
Quarter: 2022Q4

REPORT INFORMATION
  Report Type: Spontaneous
  Country: US (occurrence: US)
  Receive Date: 20221014
  Receipt Date: 20221014
  Transmission Date: 20230113
  Serious: No
  Sender: FDA-Public Use
  Company Number: US-009507513-2210USA003143

PATIENT
  Age: 71 Year
  Sex: Male

DRUGS (8)
  1. CUBICIN [Suspect]
     Active Substance: DAPTOMYCIN
  2. CEFEPIME [Concomitant]
     Active Substance: CEFEPIME HYDROCHLORIDE
  3. CANCIDAS [Concomitant]
     Active Substance: CASPOFUNGIN ACETATE
  4. VALACYCLOVIR HYDROCHLORIDE [Concomitant]
     Active Substance: VALACYCLOVIR HYDROCHLORIDE
  5. DECITABINE [Concomitant]
     Active Substance: DECITABINE
  6. VENETOCLAX [Concomitant]
     Active Substance: VENETOCLAX
  7. AMPHOTERICIN B [Concomitant]
     Active Substance: AMPHOTERICIN B
  8. ANIDULAFUNGIN [Concomitant]
     Active Substance: ANIDULAFUNGIN

REACTIONS (1)
  - Product use in unapproved indication [Unknown]
